FAERS Safety Report 8964554 (Version 1)
Quarter: 2012Q4

REPORT INFORMATION
  Report Type: 
  Country: FR (occurrence: FR)
  Receive Date: 20121214
  Receipt Date: 20121214
  Transmission Date: 20130627
  Serious: Yes (Other)
  Sender: FDA-Public Use
  Company Number: FR-ELI_LILLY_AND_COMPANY-FR201212000230

PATIENT
  Age: 74 Year
  Sex: Female

DRUGS (2)
  1. CYMBALTA [Suspect]
     Indication: DEPRESSION
     Dosage: 60 mg, qd
     Route: 048
     Dates: start: 20121020
  2. XANAX [Concomitant]
     Indication: DEPRESSION
     Dosage: UNK
     Dates: start: 20121020

REACTIONS (1)
  - Speech disorder [Unknown]
